FAERS Safety Report 5354008-2 (Version None)
Quarter: 2007Q2

REPORT INFORMATION
  Report Type: 
  Country: None (occurrence: None)
  Receive Date: 20070521
  Receipt Date: 20070125
  Transmission Date: 20071010
  Serious: No
  Sender: FDA-Public Use
  Company Number: WAES 0701USA04450

PATIENT
  Age: 64 Year
  Sex: Male

DRUGS (3)
  1. JANUVIA [Suspect]
     Indication: DIABETES MELLITUS NON-INSULIN-DEPENDENT
     Dosage: SEE IMAGE
     Route: 048
     Dates: start: 20061201, end: 20070111
  2. JANUVIA [Suspect]
     Indication: DIABETES MELLITUS NON-INSULIN-DEPENDENT
     Dosage: SEE IMAGE
     Route: 048
     Dates: start: 20070111
  3. AVAPRO [Concomitant]

REACTIONS (7)
  - BLOOD GLUCOSE INCREASED [None]
  - COUGH [None]
  - INCREASED UPPER AIRWAY SECRETION [None]
  - POLLAKIURIA [None]
  - RHINORRHOEA [None]
  - STOMACH DISCOMFORT [None]
  - WRONG TECHNIQUE IN DRUG USAGE PROCESS [None]
